FAERS Safety Report 8085106-0 (Version None)
Quarter: 2012Q1

REPORT INFORMATION
  Report Type: 
  Country: None (occurrence: None)
  Receive Date: 20120128
  Receipt Date: 20110329
  Transmission Date: 20120608
  Serious: No
  Sender: FDA-Public Use
  Company Number: US-ABBOTT-11P-163-0715648-00

PATIENT
  Sex: Female
  Weight: 72.64 kg

DRUGS (6)
  1. PREDNISONE TAB [Concomitant]
     Indication: CROHN'S DISEASE
  2. LIALDA [Concomitant]
     Indication: CROHN'S DISEASE
  3. HUMIRA [Suspect]
     Indication: CROHN'S DISEASE
     Dosage: 160 MG LOADING DOSE
     Dates: start: 20110315, end: 20110315
  4. ROWASA [Concomitant]
     Indication: CROHN'S DISEASE
     Dosage: SUPPOSITORY
  5. AZATHIOPRINE [Concomitant]
     Indication: CROHN'S DISEASE
  6. CORTISONE ENEMA [Concomitant]
     Indication: CROHN'S DISEASE

REACTIONS (6)
  - PRURITUS [None]
  - DRY SKIN [None]
  - PAIN OF SKIN [None]
  - RASH PUSTULAR [None]
  - RASH PAPULAR [None]
  - PSORIASIS [None]
